FAERS Safety Report 16007855 (Version 2)
Quarter: 2019Q1

REPORT INFORMATION
  Report Type: Spontaneous
  Country: US (occurrence: US)
  Receive Date: 20190226
  Receipt Date: 20190304
  Transmission Date: 20190418
  Serious: Yes (Hospitalization, Other)
  Sender: FDA-Public Use
  Company Number: US-PFIZER INC-2016322449

PATIENT
  Age: 68 Year
  Sex: Female

DRUGS (12)
  1. LEVOTHYROXINE. [Concomitant]
     Active Substance: LEVOTHYROXINE
     Dosage: 125 UG, UNK
  2. LEVOTHYROXINE. [Concomitant]
     Active Substance: LEVOTHYROXINE
     Dosage: 137 UG, DAILY
     Route: 048
  3. FLEXERIL [Concomitant]
     Active Substance: CYCLOBENZAPRINE HYDROCHLORIDE
     Dosage: 10 MG, UNK
  4. LODINE [Concomitant]
     Active Substance: ETODOLAC
     Dosage: 500 MG, UNK
  5. ETODOLAC. [Concomitant]
     Active Substance: ETODOLAC
     Dosage: 500 MG, 2X/DAY (AS NEEDED)
     Route: 048
  6. XELJANZ [Suspect]
     Active Substance: TOFACITINIB CITRATE
     Indication: RHEUMATOID ARTHRITIS
     Dosage: 5 MG, 2X/DAY
     Route: 048
     Dates: start: 20130314, end: 20151125
  7. PRILOSEC OTC [Concomitant]
     Active Substance: OMEPRAZOLE MAGNESIUM
     Indication: GASTROOESOPHAGEAL REFLUX DISEASE
     Dosage: 20 MG, DAILY
     Route: 048
  8. METHOTREXATE. [Concomitant]
     Active Substance: METHOTREXATE
     Dosage: 20 MG, WEEKLY
     Route: 048
  9. XELJANZ [Suspect]
     Active Substance: TOFACITINIB CITRATE
     Dosage: 5 MG, 2X/DAY
     Route: 048
     Dates: start: 201603
  10. NORCO [Concomitant]
     Active Substance: ACETAMINOPHEN\HYDROCODONE BITARTRATE
     Dosage: 7.5-325 MG
  11. TORADOL [Concomitant]
     Active Substance: KETOROLAC TROMETHAMINE
     Indication: PAIN
     Dosage: UNK
  12. VALIUM [Concomitant]
     Active Substance: DIAZEPAM
     Indication: PAIN
     Dosage: UNK

REACTIONS (14)
  - Pulmonary oedema [Unknown]
  - Pain [Unknown]
  - Streptococcal sepsis [Unknown]
  - Pneumonia [Unknown]
  - Acute kidney injury [Unknown]
  - Loss of personal independence in daily activities [Unknown]
  - Anxiety disorder [Unknown]
  - Septic shock [Unknown]
  - Bone pain [Unknown]
  - Abdominal tenderness [Unknown]
  - Gangrene [Unknown]
  - Multiple organ dysfunction syndrome [Unknown]
  - Depression [Unknown]
  - Clostridium test positive [Unknown]

NARRATIVE: CASE EVENT DATE: 201703
